FAERS Safety Report 13895479 (Version 1)
Quarter: 2017Q3

REPORT INFORMATION
  Report Type: Spontaneous
  Country: US (occurrence: None)
  Receive Date: 20170817
  Receipt Date: 20170817
  Transmission Date: 20171127
  Serious: No
  Sender: FDA-Public Use
  Company Number: None

PATIENT
  Age: 53 Year
  Sex: Female

DRUGS (1)
  1. AMPYRA [Suspect]
     Active Substance: DALFAMPRIDINE
     Indication: MULTIPLE SCLEROSIS
     Route: 048
     Dates: start: 20170725

REACTIONS (5)
  - Urine ketone body present [None]
  - Urine leukocyte esterase positive [None]
  - Urine analysis abnormal [None]
  - White blood cells urine positive [None]
  - Red blood cells urine positive [None]

NARRATIVE: CASE EVENT DATE: 20170816
